FAERS Safety Report 9169385 (Version 1)
Quarter: 2013Q1

REPORT INFORMATION
  Report Type: Spontaneous
  Country: JP (occurrence: JP)
  Receive Date: 20130318
  Receipt Date: 20130318
  Transmission Date: 20140127
  Serious: Yes (Life-Threatening, Hospitalization)
  Sender: FDA-Public Use
  Company Number: JP-ROCHE-676443

PATIENT
  Sex: Female

DRUGS (5)
  1. MABTHERA [Suspect]
     Indication: B-CELL LYMPHOMA
     Route: 065
  2. CYCLOPHOSPHAMIDE [Concomitant]
     Indication: B-CELL LYMPHOMA
     Route: 065
  3. DOXORUBICIN HYDROCHLORIDE [Concomitant]
     Indication: B-CELL LYMPHOMA
     Route: 065
  4. VINCRISTINE SULFATE [Concomitant]
     Indication: B-CELL LYMPHOMA
     Route: 065
  5. PREDNISOLONE [Concomitant]
     Indication: B-CELL LYMPHOMA
     Route: 065

REACTIONS (1)
  - Hepatitis B [Recovered/Resolved]
